FAERS Safety Report 25724583 (Version 2)
Quarter: 2025Q3

REPORT INFORMATION
  Report Type: Spontaneous
  Country: US (occurrence: US)
  Receive Date: 20250826
  Receipt Date: 20250904
  Transmission Date: 20251020
  Serious: No
  Sender: KARYOPHARM THERAPEUTICS
  Company Number: US-KARYOPHARM-2025KPT100657

PATIENT

DRUGS (9)
  1. SELINEXOR [Suspect]
     Active Substance: SELINEXOR
     Indication: Plasma cell myeloma
     Route: 048
     Dates: start: 20250821
  2. ACYCLOVIR [Concomitant]
     Active Substance: ACYCLOVIR
  3. BETAMETHASONE DIPROPIONATE [Concomitant]
     Active Substance: BETAMETHASONE DIPROPIONATE
  4. CARVEDILOL [Concomitant]
     Active Substance: CARVEDILOL
  5. DEXAMETHASONE [Concomitant]
     Active Substance: DEXAMETHASONE
  6. ELIQUIS [Concomitant]
     Active Substance: APIXABAN
  7. KYPROLIS [Concomitant]
     Active Substance: CARFILZOMIB
  8. ACETAMINOPHEN\HYDROCODONE [Concomitant]
     Active Substance: ACETAMINOPHEN\HYDROCODONE
  9. LENALIDOMIDE [Concomitant]
     Active Substance: LENALIDOMIDE

REACTIONS (3)
  - Nausea [Not Recovered/Not Resolved]
  - Taste disorder [Unknown]
  - Insomnia [Unknown]

NARRATIVE: CASE EVENT DATE: 20250101
